FAERS Safety Report 7351071-4 (Version None)
Quarter: 2011Q1

REPORT INFORMATION
  Report Type: 
  Country: None (occurrence: None)
  Receive Date: 20110314
  Receipt Date: 20110216
  Transmission Date: 20110831
  Serious: Yes (Hospitalization, Disabling, Other)
  Sender: FDA-Public Use
  Company Number: US-BAYER-201029734NA

PATIENT
  Sex: Female
  Weight: 68.027 kg

DRUGS (8)
  1. ACCUTANE [Concomitant]
     Indication: ACNE
     Dosage: UNK UNK, BID
     Route: 048
     Dates: start: 20070411, end: 20070911
  2. UNCODEABLE ^UNCLASSIFIABLE^ [Concomitant]
  3. SOTRET [Concomitant]
     Dosage: UNK
     Dates: start: 20070611
  4. TOPAMAX [Concomitant]
     Dosage: UNK
     Dates: start: 20060101
  5. YAZ [Suspect]
     Indication: ACNE
     Dosage: UNK
     Route: 048
  6. TOPIRAMATE [Concomitant]
     Dosage: UNK
     Dates: start: 20060101
  7. UNCODEABLE ^UNCLASSIFIABLE^ [Concomitant]
     Dosage: UNK
     Dates: start: 20060620, end: 20070319
  8. YASMIN [Suspect]
     Indication: ACNE
     Dosage: UNK
     Route: 048
     Dates: start: 20070401, end: 20070629

REACTIONS (8)
  - OEDEMA PERIPHERAL [None]
  - DEEP VEIN THROMBOSIS [None]
  - IMPAIRED WORK ABILITY [None]
  - WEIGHT INCREASED [None]
  - PULMONARY EMBOLISM [None]
  - INSOMNIA [None]
  - DYSPNOEA [None]
  - PAIN IN EXTREMITY [None]
